FAERS Safety Report 4633556-4 (Version None)
Quarter: 2005Q2

REPORT INFORMATION
  Report Type: 
  Country: None (occurrence: None)
  Receive Date: 20050331
  Receipt Date: 20041227
  Transmission Date: 20051028
  Serious: Yes (Other)
  Sender: FDA-Public Use
  Company Number: 200416265BCC

PATIENT
  Age: 68 Year
  Sex: Female
  Weight: 73.4827 kg

DRUGS (2)
  1. ALEVE [Suspect]
     Indication: NASOPHARYNGITIS
     Dosage: 220 MG ONCE ORAL
     Route: 048
     Dates: start: 20041226
  2. THYROID TAB [Concomitant]

REACTIONS (6)
  - BURNING SENSATION [None]
  - HYPERSENSITIVITY [None]
  - OEDEMA PERIPHERAL [None]
  - PRURITUS [None]
  - PRURITUS GENERALISED [None]
  - SPEECH DISORDER [None]
